FAERS Safety Report 5653097-5 (Version None)
Quarter: 2008Q1

REPORT INFORMATION
  Report Type: 
  Country: None (occurrence: None)
  Receive Date: 20080306
  Receipt Date: 20080227
  Transmission Date: 20080703
  Serious: Yes (Other)
  Sender: FDA-Public Use
  Company Number: PHBS2007BE09103

PATIENT
  Age: 50 Year
  Sex: Female

DRUGS (2)
  1. MIACALCIN [Suspect]
     Dosage: 50 IU, UNK
     Dates: start: 20070531, end: 20070601
  2. CALCIUM [Concomitant]

REACTIONS (2)
  - MALAISE [None]
  - URINARY INCONTINENCE [None]
